FAERS Safety Report 6508538-8 (Version None)
Quarter: 2009Q4

REPORT INFORMATION
  Report Type: 
  Country: None (occurrence: None)
  Receive Date: 20091221
  Receipt Date: 20081222
  Transmission Date: 20100525
  Serious: No
  Sender: FDA-Public Use
  Company Number: US-ASTRAZENECA-2008UW25866

PATIENT
  Age: 53 Year
  Sex: Female

DRUGS (1)
  1. CRESTOR [Suspect]
     Dosage: 5 MG
     Route: 048

REACTIONS (3)
  - ILL-DEFINED DISORDER [None]
  - POOR QUALITY SLEEP [None]
  - PRODUCT QUALITY ISSUE [None]
